FAERS Safety Report 25807220 (Version 1)
Quarter: 2025Q3

REPORT INFORMATION
  Report Type: Spontaneous
  Country: US (occurrence: None)
  Receive Date: 20250915
  Receipt Date: 20250915
  Transmission Date: 20251020
  Serious: Yes (Death)
  Sender: FDA-CTU
  Company Number: None

PATIENT
  Age: 83 Year
  Sex: Female
  Weight: 67.4 kg

DRUGS (15)
  1. DEFERASIROX [Suspect]
     Active Substance: DEFERASIROX
     Indication: Myelodysplastic syndrome
     Dosage: 2000MG DAILY ORAL ?
     Dates: start: 20250714, end: 20250915
  2. ASPIRIN 81MG EC LOW DOSE TABLETS [Concomitant]
  3. CALCIUM 500MG TABLETS [Concomitant]
  4. COENZVME Q10 50MG CAPSULE# [Concomitant]
  5. FISH OIL 1 000MG CAPSULES [Concomitant]
  6. MULTIVITAMIN ADULTS  TABLETS: [Concomitant]
  7. VITAMIN C 1000MG TABLETS [Concomitant]
  8. VITAMIN D3 1.000 UNI.T TABLETS/ [Concomitant]
  9. VITAMIN B-121000MCG CR TABLETS [Concomitant]
  10. ATORVASTATIN CALCIUM [Concomitant]
     Active Substance: ATORVASTATIN CALCIUM
  11. FAMOTIDINE; 20MG TABLETS [Concomitant]
  12. ZYRTEC 10MG TABLETS OTC [Concomitant]
  13. BUSPIRONE 10MG TABLETS [Concomitant]
  14. TORSEMIPE 10MG TABLETS [Concomitant]
  15. TROCHLORPERAZINE 10MG TAB!LETS [Concomitant]

REACTIONS (1)
  - Death [None]
